FAERS Safety Report 18783953 (Version 4)
Quarter: 2021Q1

REPORT INFORMATION
  Report Type: Report from Study
  Country: US (occurrence: US)
  Receive Date: 20210125
  Receipt Date: 20210223
  Transmission Date: 20210419
  Serious: Yes (Death, Hospitalization, Other)
  Sender: FDA-Public Use
  Company Number: US-AGIOS-2012US02380

PATIENT

DRUGS (3)
  1. VENCLEXTA [Concomitant]
     Active Substance: VENETOCLAX
     Dosage: 200 MILLIGRAM, QD
     Route: 048
  2. TIBSOVO [Suspect]
     Active Substance: IVOSIDENIB
     Indication: ACUTE MYELOID LEUKAEMIA
     Dosage: 250 MILLIGRAM, 2 TABLET (500 MG), QD
     Route: 048
  3. VENCLEXTA [Concomitant]
     Active Substance: VENETOCLAX
     Indication: ACUTE MYELOID LEUKAEMIA
     Dosage: 400 MILLIGRAM, QD
     Route: 048
     Dates: start: 20190408

REACTIONS (11)
  - Incontinence [Unknown]
  - Hypokinesia [Unknown]
  - Cardiac failure congestive [Unknown]
  - Dehydration [Unknown]
  - Blood pressure decreased [Unknown]
  - Loss of consciousness [Unknown]
  - COVID-19 [Unknown]
  - Pleural effusion [Unknown]
  - Bedridden [Unknown]
  - Death [Fatal]
  - Pneumonia [Unknown]
